FAERS Safety Report 4404670-3 (Version None)
Quarter: 2004Q3

REPORT INFORMATION
  Report Type: 
  Country: None (occurrence: None)
  Receive Date: 20040722
  Receipt Date: 20030407
  Transmission Date: 20050211
  Serious: Yes (Hospitalization, Disabling, Other)
  Sender: FDA-Public Use
  Company Number: US-MERCK-0304USA00748

PATIENT
  Age: 65 Year
  Sex: Male
  Weight: 105 kg

DRUGS (11)
  1. VICODIN [Concomitant]
     Route: 065
  2. NORVASC [Concomitant]
     Route: 065
  3. ASPIRIN [Concomitant]
     Route: 065
     Dates: start: 20020405, end: 20040201
  4. MONOPRIL [Concomitant]
     Route: 065
  5. NEURONTIN [Concomitant]
     Route: 065
  6. LORAZEPAM [Concomitant]
     Route: 065
  7. SEROQUEL [Concomitant]
     Route: 065
  8. VIOXX [Suspect]
     Indication: SPINAL OSTEOARTHRITIS
     Route: 048
     Dates: start: 19990101
  9. COUMADIN [Concomitant]
     Route: 065
     Dates: start: 20010201, end: 20010712
  10. COUMADIN [Concomitant]
     Route: 065
     Dates: start: 20010201, end: 20010712
  11. COUMADIN [Concomitant]
     Route: 065
     Dates: start: 20020205, end: 20020511

REACTIONS (34)
  - ABDOMINAL PAIN UPPER [None]
  - ACTIVATED PARTIAL THROMBOPLASTIN TIME PROLONGED [None]
  - ANXIETY [None]
  - BRADYCARDIA [None]
  - BREAST PAIN [None]
  - CARDIAC ANEURYSM [None]
  - CARDIAC FAILURE CONGESTIVE [None]
  - CELLULITIS [None]
  - CEREBRAL INFARCTION [None]
  - CHEST PAIN [None]
  - CONGENITAL ATRIAL SEPTAL DEFECT [None]
  - CORONARY ARTERY DISEASE [None]
  - CORONARY ARTERY RESTENOSIS [None]
  - DIVERTICULUM [None]
  - DRUG DEPENDENCE [None]
  - DYSPNOEA [None]
  - EMOTIONAL DISTRESS [None]
  - HAEMORRHOIDS [None]
  - HEADACHE [None]
  - HYPERTROPHY BREAST [None]
  - INJURY [None]
  - INTERMITTENT CLAUDICATION [None]
  - INTRACRANIAL ANEURYSM [None]
  - LACUNAR INFARCTION [None]
  - MAJOR DEPRESSION [None]
  - MYOCARDIAL INFARCTION [None]
  - OEDEMA PERIPHERAL [None]
  - PAIN [None]
  - POLLAKIURIA [None]
  - SPINAL OSTEOARTHRITIS [None]
  - SUICIDAL IDEATION [None]
  - TRANSIENT ISCHAEMIC ATTACK [None]
  - VARICES OESOPHAGEAL [None]
  - WEIGHT INCREASED [None]
